FAERS Safety Report 14449475 (Version 2)
Quarter: 2018Q2

REPORT INFORMATION
  Report Type: Report from Study
  Country: BR (occurrence: BR)
  Receive Date: 20180127
  Receipt Date: 20180409
  Transmission Date: 20180711
  Serious: Yes (Other)
  Sender: FDA-Public Use
  Company Number: BR-UCBSA-2017051872

PATIENT
  Age: 57 Year
  Sex: Male

DRUGS (5)
  1. AMYTRIL [Concomitant]
     Active Substance: AMITRIPTYLINE HYDROCHLORIDE
     Indication: INSOMNIA
     Dosage: UNK
  2. ROTIGOTINE [Suspect]
     Active Substance: ROTIGOTINE
     Indication: PARKINSON^S DISEASE
     Dosage: 4 MG, ONCE DAILY (QD)
     Route: 062
     Dates: start: 20171101
  3. CARBIDOL [Concomitant]
     Indication: PRODUCT USED FOR UNKNOWN INDICATION
     Dosage: UNK
  4. METFORMIN HYDROCHLORIDE. [Concomitant]
     Active Substance: METFORMIN HYDROCHLORIDE
     Indication: DIABETES MELLITUS
     Dosage: UNK
  5. LOSARTAN. [Concomitant]
     Active Substance: LOSARTAN
     Indication: HYPERTENSION
     Dosage: UNK

REACTIONS (12)
  - Gait disturbance [Unknown]
  - Asthenia [Unknown]
  - Malaise [Recovered/Resolved]
  - Tremor [Not Recovered/Not Resolved]
  - Drug dose omission [Unknown]
  - Dizziness [Recovered/Resolved]
  - Depressed mood [Recovered/Resolved]
  - Crying [Recovered/Resolved]
  - Seizure [Recovered/Resolved]
  - Feeling hot [Recovered/Resolved]
  - Fall [Unknown]
  - Hyperhidrosis [Unknown]

NARRATIVE: CASE EVENT DATE: 201711
